FAERS Safety Report 7529419-7 (Version None)
Quarter: 2011Q2

REPORT INFORMATION
  Report Type: 
  Country: None (occurrence: None)
  Receive Date: 20110520
  Receipt Date: 20110214
  Transmission Date: 20111010
  Serious: No
  Sender: FDA-Public Use
  Company Number: 027584

PATIENT
  Age: 37 Year
  Sex: Female

DRUGS (3)
  1. LACOSAMIDE [Suspect]
     Indication: EPILEPSY
     Dosage: (100 MG BID)
  2. KEPPRA [Suspect]
     Dosage: (4 G)
  3. LAMICTAL [Suspect]
     Dosage: (450 MG QD)

REACTIONS (1)
  - RASH GENERALISED [None]
